FAERS Safety Report 22796619 (Version 4)
Quarter: 2024Q4

REPORT INFORMATION
  Report Type: Report from Study
  Country: US (occurrence: US)
  Receive Date: 20230808
  Receipt Date: 20241205
  Transmission Date: 20250115
  Serious: Yes (Other)
  Sender: ROCHE
  Company Number: US-ROCHE-3399515

PATIENT
  Age: 25 Year
  Sex: Female
  Weight: 78.47 kg

DRUGS (14)
  1. OCREVUS [Suspect]
     Active Substance: OCRELIZUMAB
     Indication: Multiple sclerosis
     Route: 042
  2. OCREVUS [Suspect]
     Active Substance: OCRELIZUMAB
     Dosage: ON 12/JUN/2023 600 MG IN 500 ML 0.9% NS
     Route: 042
  3. SOLU-MEDROL [Concomitant]
     Active Substance: METHYLPREDNISOLONE SODIUM SUCCINATE
     Route: 042
     Dates: start: 20230612
  4. SOLU-MEDROL [Concomitant]
     Active Substance: METHYLPREDNISOLONE SODIUM SUCCINATE
     Dosage: 09/NOV/2022
     Route: 042
     Dates: start: 20221108
  5. CLONAZEPAM [Concomitant]
     Active Substance: CLONAZEPAM
     Route: 048
     Dates: start: 20230509
  6. CYCLOBENZAPRINE [Concomitant]
     Active Substance: CYCLOBENZAPRINE
     Indication: Muscle spasms
     Route: 048
     Dates: start: 20230608
  7. NAPROXEN [Concomitant]
     Active Substance: NAPROXEN
     Route: 048
     Dates: start: 20230612
  8. KYLEENA [Concomitant]
     Active Substance: LEVONORGESTREL
     Dosage: AS DIERCTED
     Dates: start: 20221011
  9. PREGABALIN [Concomitant]
     Active Substance: PREGABALIN
     Route: 048
     Dates: start: 20230522
  10. PRIMIDONE [Concomitant]
     Active Substance: PRIMIDONE
     Route: 048
     Dates: start: 20230608
  11. TYSABRI [Concomitant]
     Active Substance: NATALIZUMAB
     Route: 042
     Dates: start: 20221107
  12. DIPHENHYDRAMINE [Concomitant]
     Active Substance: DIPHENHYDRAMINE
     Route: 048
     Dates: start: 20230612
  13. ACETAMINOPHEN [Concomitant]
     Active Substance: ACETAMINOPHEN
     Route: 048
     Dates: start: 20230612
  14. CHOLECALCIFEROL [Concomitant]
     Active Substance: CHOLECALCIFEROL

REACTIONS (16)
  - Neck pain [Unknown]
  - Back pain [Unknown]
  - Muscle spasms [Unknown]
  - Musculoskeletal pain [Unknown]
  - Vitamin D deficiency [Unknown]
  - Essential tremor [Unknown]
  - Paraparesis [Unknown]
  - Gait disturbance [Unknown]
  - Pain [Unknown]
  - Immunodeficiency [Unknown]
  - Paraesthesia [Unknown]
  - Hypoaesthesia [Unknown]
  - Magnetic resonance imaging head abnormal [Unknown]
  - Musculoskeletal pain [Unknown]
  - Neuralgia [Unknown]
  - Tremor [Unknown]

NARRATIVE: CASE EVENT DATE: 20220302
